FAERS Safety Report 4610049-1 (Version None)
Quarter: 2005Q1

REPORT INFORMATION
  Report Type: 
  Country: None (occurrence: None)
  Receive Date: 20050316
  Receipt Date: 20050125
  Transmission Date: 20050727
  Serious: Yes (Other)
  Sender: FDA-Public Use
  Company Number: JP-GLAXOSMITHKLINE-B0369316A

PATIENT
  Age: 53 Year
  Sex: Female

DRUGS (1)
  1. ZEFIX [Suspect]
     Route: 048

REACTIONS (3)
  - HEPATIC TRAUMA [None]
  - LIVER FUNCTION TEST ABNORMAL [None]
  - TRANSPLANT REJECTION [None]
